FAERS Safety Report 9766221 (Version 1)
Quarter: 2013Q4

REPORT INFORMATION
  Report Type: Spontaneous
  Country: US (occurrence: US)
  Receive Date: 20131217
  Receipt Date: 20131217
  Transmission Date: 20140711
  Serious: No
  Sender: FDA-Public Use
  Company Number: US-GLAXOSMITHKLINE-A1023071A

PATIENT
  Age: 75 Year
  Sex: Male

DRUGS (5)
  1. VOTRIENT [Suspect]
     Indication: RENAL CELL CARCINOMA
     Dosage: 800MG PER DAY
     Route: 048
     Dates: start: 201207, end: 20130508
  2. UNSPECIFIED MEDICATION [Concomitant]
     Indication: THYROID DISORDER
  3. ANTIHYPERTENSIVE [Concomitant]
  4. UNSPECIFIED MEDICATION [Concomitant]
     Indication: DIABETES MELLITUS
  5. IRON [Concomitant]

REACTIONS (5)
  - Decreased appetite [Recovering/Resolving]
  - Malaise [Unknown]
  - Nausea [Unknown]
  - Asthenia [Unknown]
  - Drug ineffective [Unknown]
